FAERS Safety Report 9423490 (Version 3)
Quarter: 2013Q4

REPORT INFORMATION
  Report Type: Report from Study
  Country: US (occurrence: US)
  Receive Date: 20130726
  Receipt Date: 20131011
  Transmission Date: 20140711
  Serious: Yes (Death, Hospitalization, Other)
  Sender: FDA-Public Use
  Company Number: US-ALEXION PHARMACEUTICALS INC.-A201301695

PATIENT
  Age: 79 Year
  Sex: Female
  Weight: 81 kg

DRUGS (1)
  1. SOLIRIS [Suspect]
     Indication: HAEMOLYTIC URAEMIC SYNDROME
     Dosage: UNK
     Route: 042
     Dates: end: 20120803

REACTIONS (4)
  - Breast cancer metastatic [Fatal]
  - Platelet count abnormal [Recovering/Resolving]
  - Bone cancer [Unknown]
  - Treatment failure [Unknown]
